FAERS Safety Report 20348170 (Version 3)
Quarter: 2022Q2

REPORT INFORMATION
  Report Type: Other
  Country: US (occurrence: US)
  Receive Date: 20220119
  Receipt Date: 20220428
  Transmission Date: 20220721
  Serious: Yes (Other)
  Sender: FDA-Public Use
  Company Number: US-Covis Pharma GmbH-2021COV24595

PATIENT
  Age: 28 Year
  Sex: Female
  Weight: 63.560 kg

DRUGS (1)
  1. MAKENA [Suspect]
     Active Substance: HYDROXYPROGESTERONE CAPROATE
     Indication: Premature delivery
     Route: 058
     Dates: start: 20210923, end: 20210930

REACTIONS (6)
  - Premature delivery [Recovered/Resolved]
  - Nerve injury [Unknown]
  - Paraesthesia [Unknown]
  - Limb discomfort [Unknown]
  - Injection site bruising [Unknown]
  - Injection site nodule [Unknown]

NARRATIVE: CASE EVENT DATE: 20210930
